FAERS Safety Report 6671714-8 (Version None)
Quarter: 2010Q2

REPORT INFORMATION
  Report Type: 
  Country: None (occurrence: None)
  Receive Date: 20100407
  Receipt Date: 20100405
  Transmission Date: 20101027
  Serious: Yes (Death, Hospitalization, Other)
  Sender: FDA-Public Use
  Company Number: US-TEVA-229942USA

PATIENT
  Sex: Female

DRUGS (4)
  1. MEDROXYPROGESTERONE [Suspect]
  2. PROVELLA-14 [Suspect]
  3. SYNTHETIC PROGESTOGENS [Suspect]
  4. GENERIC ESTOGEN [Suspect]

REACTIONS (2)
  - BREAST CANCER [None]
  - INJURY [None]
